FAERS Safety Report 8281977-3 (Version None)
Quarter: 2012Q2

REPORT INFORMATION
  Report Type: 
  Country: None (occurrence: None)
  Receive Date: 20120413
  Receipt Date: 20120404
  Transmission Date: 20120825
  Serious: Yes (Life-Threatening, Other)
  Sender: FDA-Public Use
  Company Number: DE-UCBSA-032331

PATIENT
  Age: 81 Year
  Sex: Female

DRUGS (12)
  1. CLOPIDOGREL [Concomitant]
     Dosage: DAILY DOSE : 75 MG
  2. KEPPRA [Concomitant]
     Indication: STATUS EPILEPTICUS
     Route: 042
     Dates: end: 20110502
  3. VIMPAT [Suspect]
     Indication: STATUS EPILEPTICUS
     Dosage: 100MG+100MG+100MG+200MG
     Route: 042
     Dates: start: 20110503, end: 20110503
  4. LOSARTAN POTASSIUM [Concomitant]
     Indication: HYPERTENSION
     Route: 048
     Dates: start: 20110501
  5. AMLODIPINE [Concomitant]
     Dosage: DAILY DOSE : 10 MG
     Dates: end: 20110501
  6. INSULIN [Concomitant]
  7. KEPPRA [Concomitant]
     Route: 042
     Dates: start: 20110502
  8. TORSEMIDE [Concomitant]
     Dosage: DAILY DOSE : 20 MG
  9. METRONIDAZOLE [Concomitant]
     Indication: PNEUMONIA
     Route: 042
     Dates: start: 20110502, end: 20110504
  10. METOPROLOL TARTRATE [Concomitant]
     Indication: TACHYARRHYTHMIA
     Dosage: DAILY DOSE : 95 MG
     Route: 048
     Dates: end: 20110502
  11. ROCEPHIN [Concomitant]
     Indication: PNEUMONIA
     Route: 042
     Dates: start: 20110502, end: 20110504
  12. DIGITOXIN TAB [Concomitant]
     Dosage: DAILY DOSE : 0.07 MG

REACTIONS (1)
  - ATRIOVENTRICULAR BLOCK COMPLETE [None]
